FAERS Safety Report 15413431 (Version 1)
Quarter: 2018Q3

REPORT INFORMATION
  Report Type: Report from Study
  Country: DE (occurrence: DE)
  Receive Date: 20180921
  Receipt Date: 20180921
  Transmission Date: 20181010
  Serious: Yes (Hospitalization)
  Sender: FDA-Public Use
  Company Number: DE-AMGEN-DEUCT2018118707

PATIENT
  Age: 49 Year
  Sex: Male
  Weight: 102 kg

DRUGS (5)
  1. FOLINIC ACID [Suspect]
     Active Substance: LEUCOVORIN
     Indication: COLON CANCER
     Dosage: 908 MG, UNK
     Route: 042
     Dates: start: 20180809
  2. 5?FLUOROURACIL [Suspect]
     Active Substance: FLUOROURACIL
     Indication: COLON CANCER
     Dosage: 6356 MG, UNK
     Route: 042
     Dates: start: 20180809
  3. OXALIPLATIN. [Suspect]
     Active Substance: OXALIPLATIN
     Indication: COLON CANCER
     Dosage: 193 MG, UNK
     Route: 042
     Dates: start: 20180809
  4. PANITUMUMAB [Suspect]
     Active Substance: PANITUMUMAB
     Indication: COLON CANCER
     Dosage: 612 MG, UNK
     Route: 042
     Dates: start: 20180809
  5. RAMIPRIL HCT [Concomitant]
     Active Substance: HYDROCHLOROTHIAZIDE\RAMIPRIL
     Indication: HYPERTENSION
     Dosage: 5/25 MG, QD (1/2 TABLET IN MORNING)
     Route: 048

REACTIONS (2)
  - Infection [Recovered/Resolved]
  - Infusion related reaction [Not Recovered/Not Resolved]

NARRATIVE: CASE EVENT DATE: 20180823
